FAERS Safety Report 10514700 (Version 1)
Quarter: 2014Q4

REPORT INFORMATION
  Report Type: Spontaneous
  Country: US (occurrence: US)
  Receive Date: 20141013
  Receipt Date: 20141013
  Transmission Date: 20150528
  Serious: Yes (Other)
  Sender: FDA-Public Use
  Company Number: US-JNJFOC-20141007095

PATIENT
  Age: 43 Year
  Sex: Male
  Weight: 89 kg

DRUGS (15)
  1. COREG [Concomitant]
     Active Substance: CARVEDILOL
  2. ONDANSETRON [Concomitant]
     Active Substance: ONDANSETRON
  3. IMBRUVICA [Suspect]
     Active Substance: IBRUTINIB
     Indication: CHRONIC LYMPHOCYTIC LEUKAEMIA
     Route: 048
     Dates: start: 20140925
  4. ESOMEPRAZOLE [Concomitant]
     Active Substance: ESOMEPRAZOLE
  5. LEVEMIR [Concomitant]
     Active Substance: INSULIN DETEMIR
  6. VICODIN [Concomitant]
     Active Substance: ACETAMINOPHEN\HYDROCODONE BITARTRATE
  7. LOSARTAN [Concomitant]
     Active Substance: LOSARTAN
  8. GLIPIZIDE. [Concomitant]
     Active Substance: GLIPIZIDE
  9. NOVOLIN R [Concomitant]
     Active Substance: INSULIN HUMAN
  10. ASPIRIN. [Concomitant]
     Active Substance: ASPIRIN
  11. BACTRIM [Concomitant]
     Active Substance: SULFAMETHOXAZOLE\TRIMETHOPRIM
  12. ACYCLOVIR. [Concomitant]
     Active Substance: ACYCLOVIR
  13. IMBRUVICA [Suspect]
     Active Substance: IBRUTINIB
     Indication: CHRONIC LYMPHOCYTIC LEUKAEMIA
     Route: 048
     Dates: start: 20140823
  14. IMBRUVICA [Suspect]
     Active Substance: IBRUTINIB
     Indication: CHRONIC LYMPHOCYTIC LEUKAEMIA
     Route: 048
     Dates: start: 201406
  15. DIAZEPAM. [Concomitant]
     Active Substance: DIAZEPAM

REACTIONS (4)
  - Blood alkaline phosphatase abnormal [None]
  - Liver function test abnormal [Unknown]
  - Aspartate aminotransferase abnormal [None]
  - Alanine aminotransferase abnormal [None]

NARRATIVE: CASE EVENT DATE: 20140717
